FAERS Safety Report 19685628 (Version 1)
Quarter: 2021Q3

REPORT INFORMATION
  Report Type: Spontaneous
  Country: FR (occurrence: FR)
  Receive Date: 20210811
  Receipt Date: 20210811
  Transmission Date: 20211014
  Serious: Yes (Hospitalization)
  Sender: FDA-Public Use
  Company Number: FR-SUN PHARMACEUTICAL INDUSTRIES LTD-2021RR-307473

PATIENT
  Age: 80 Year
  Sex: Male
  Weight: 105 kg

DRUGS (5)
  1. DIGOXINE [Suspect]
     Active Substance: DIGOXIN
     Indication: ATRIAL FIBRILLATION
     Dosage: 0.13 MILLIGRAM, DAILY
     Route: 048
  2. VILDAGLIPTINE [Suspect]
     Active Substance: VILDAGLIPTIN
     Indication: TYPE 2 DIABETES MELLITUS
     Dosage: 2 DOSAGE FORM, DAILY
     Route: 048
     Dates: start: 20100803, end: 20210702
  3. METFORMIN [Suspect]
     Active Substance: METFORMIN HYDROCHLORIDE
     Indication: TYPE 2 DIABETES MELLITUS
     Dosage: 2000 MILLIGRAM, DAILY
     Route: 048
     Dates: start: 20100803
  4. PREVISCAN 20 MG, COMPRIME SECABLE [Suspect]
     Active Substance: FLUINDIONE
     Indication: ATRIAL FIBRILLATION
     Dosage: 1 DOSAGE FORM, DAILY
     Route: 048
  5. BISOPROLOL (FUMARATE ACIDE DE) [Suspect]
     Active Substance: BISOPROLOL FUMARATE
     Indication: ATRIAL FIBRILLATION
     Dosage: 2.5 MILLIGRAM, DAILY
     Route: 048

REACTIONS (1)
  - Pemphigoid [Recovering/Resolving]

NARRATIVE: CASE EVENT DATE: 202106
